FAERS Safety Report 10626154 (Version 1)
Quarter: 2014Q4

REPORT INFORMATION
  Report Type: Spontaneous
  Country: BR (occurrence: BR)
  Receive Date: 20141204
  Receipt Date: 20141204
  Transmission Date: 20150529
  Serious: Yes (Other)
  Sender: FDA-Public Use
  Company Number: PHHY2014BR157747

PATIENT
  Age: 4 Month
  Sex: Female

DRUGS (5)
  1. ISONIAZID. [Suspect]
     Active Substance: ISONIAZID
     Indication: LYMPHADENITIS BACTERIAL
     Dosage: 10 MG/KG, QD
     Route: 065
  2. ETHAMBUTOL [Concomitant]
     Active Substance: ETHAMBUTOL HYDROCHLORIDE
     Indication: LYMPHADENITIS BACTERIAL
     Dosage: 25 MG/KG, QD
     Route: 065
  3. ISONIAZID. [Suspect]
     Active Substance: ISONIAZID
     Route: 065
  4. ISONIAZID. [Suspect]
     Active Substance: ISONIAZID
     Dosage: 10 MG/KG, QD
     Route: 065
  5. RIFAMPICIN [Suspect]
     Active Substance: RIFAMPIN
     Indication: LYMPHADENITIS BACTERIAL
     Dosage: 10 MG/KG, QD
     Route: 065

REACTIONS (3)
  - Drug resistance [Unknown]
  - Vaccination site lymphadenopathy [Recovered/Resolved]
  - Drug ineffective [Unknown]
